FAERS Safety Report 4825645-6 (Version None)
Quarter: 2005Q4

REPORT INFORMATION
  Report Type: 
  Country: None (occurrence: None)
  Receive Date: 20051111
  Receipt Date: 20051103
  Transmission Date: 20060501
  Serious: Yes (Death)
  Sender: FDA-Public Use
  Company Number: US-ABBOTT-05P-163-0316448-00

PATIENT
  Sex: Male
  Weight: 52.664 kg

DRUGS (15)
  1. DILAUDID [Suspect]
     Indication: PAIN
     Route: 042
     Dates: start: 20050614, end: 20050614
  2. DILAUDID [Suspect]
     Route: 042
     Dates: start: 20050622, end: 20050704
  3. DILAUDID [Suspect]
     Dates: start: 20050622, end: 20050704
  4. IRINOTECAN HYDROCHLORIDE [Suspect]
     Indication: ADENOCARCINOMA
     Route: 042
     Dates: start: 20050601, end: 20050601
  5. GEMCITABINE HYDROCHLORIDE [Suspect]
     Indication: ADENOCARCINOMA
     Route: 042
     Dates: start: 20050601, end: 20050601
  6. PACLITAXEL [Suspect]
     Indication: ADENOCARCINOMA
     Route: 042
     Dates: start: 20041122, end: 20050309
  7. CARBOPLATIN [Suspect]
     Indication: ADENOCARCINOMA
     Route: 042
     Dates: start: 20041122, end: 20050309
  8. ETOPOSIDE [Suspect]
     Indication: ADENOCARCINOMA
     Route: 048
     Dates: start: 20041122, end: 20050319
  9. ETOPOSIDE [Suspect]
     Dosage: 100 MG (50 MG ALTERNATED WITH 100MG)
     Route: 048
     Dates: start: 20041122, end: 20050319
  10. GEFITINIB [Suspect]
     Indication: ADENOCARCINOMA
     Route: 048
     Dates: start: 20050320, end: 20050527
  11. FENTANYL [Concomitant]
     Indication: PAIN
     Route: 062
     Dates: start: 20050601, end: 20050704
  12. VICODIN [Concomitant]
     Indication: PAIN
     Route: 065
     Dates: start: 20050422, end: 20050704
  13. ONDANSETRON HYDROCHLORIDE [Concomitant]
     Indication: NAUSEA
     Route: 065
     Dates: start: 20041122, end: 20050704
  14. LEXAPRO [Concomitant]
     Indication: DEPRESSION
     Route: 065
     Dates: start: 20050622, end: 20050704
  15. TPN [Concomitant]
     Indication: DRUG USE FOR UNKNOWN INDICATION
     Dates: start: 20050601

REACTIONS (2)
  - DEHYDRATION [None]
  - PLEURAL EFFUSION [None]
